FAERS Safety Report 9696928 (Version 2)
Quarter: 2013Q4

REPORT INFORMATION
  Report Type: Spontaneous
  Country: US (occurrence: US)
  Receive Date: 20131119
  Receipt Date: 20131119
  Transmission Date: 20140711
  Serious: No
  Sender: FDA-Public Use
  Company Number: US-GILEAD-2007-0013806

PATIENT
  Sex: Female

DRUGS (11)
  1. LETAIRIS [Suspect]
     Indication: PULMONARY ARTERIAL HYPERTENSION
     Route: 048
     Dates: start: 20070821, end: 20080107
  2. LETAIRIS [Suspect]
     Route: 048
     Dates: start: 20080108
  3. ARANESP [Concomitant]
  4. DIGOXIN [Concomitant]
  5. NORVASC [Concomitant]
  6. TOPROL [Concomitant]
  7. NEXIUM [Concomitant]
  8. PHOSLO [Concomitant]
  9. RENAGEL [Concomitant]
  10. SENSIPAR [Concomitant]
  11. EPOGEN [Concomitant]
     Indication: RED BLOOD CELL COUNT DECREASED

REACTIONS (1)
  - Red blood cell count decreased [Unknown]
